FAERS Safety Report 9902799 (Version 2)
Quarter: 2014Q3

REPORT INFORMATION
  Report Type: Report from Study
  Country: DE (occurrence: DE)
  Receive Date: 20140217
  Receipt Date: 20140702
  Transmission Date: 20150326
  Serious: Yes (Death)
  Sender: FDA-Public Use
  Company Number: PHHY2014DE018281

PATIENT
  Sex: Male
  Weight: 80 kg

DRUGS (10)
  1. BERODUAL N [Concomitant]
     Active Substance: FENOTEROL HYDROBROMIDE\IPRATROPIUM BROMIDE
  2. ASS AL [Concomitant]
     Dosage: 100 MG, UNK
  3. MOBLOC [Concomitant]
  4. ULTIBRO BREEZHALER [Suspect]
     Active Substance: GLYCOPYRRONIUM\INDACATEROL
     Indication: CHRONIC OBSTRUCTIVE PULMONARY DISEASE
     Dosage: 1 DF, QD
     Route: 055
     Dates: start: 20131115, end: 20131229
  5. ONBREZ [Suspect]
     Active Substance: INDACATEROL
     Dosage: 1 DF, QD
     Dates: start: 20130118, end: 20131114
  6. CO-DIOVAN [Concomitant]
     Active Substance: HYDROCHLOROTHIAZIDE\VALSARTAN
  7. GLYCOPYRRONIUM BROMIDE [Suspect]
     Active Substance: GLYCOPYRRONIUM
     Indication: CHRONIC OBSTRUCTIVE PULMONARY DISEASE
     Dosage: 1 DF, QD
     Route: 055
     Dates: start: 20130118, end: 20131114
  8. DUSODRIL [Concomitant]
     Active Substance: NAFRONYL OXALATE
  9. MILURIT [Concomitant]
     Active Substance: ALLOPURINOL
  10. SIMVASTATIN ACCORD [Concomitant]

REACTIONS (4)
  - Hypocapnia [Fatal]
  - Chronic obstructive pulmonary disease [Fatal]
  - Hypoxia [Fatal]
  - Fungal infection [Fatal]

NARRATIVE: CASE EVENT DATE: 20131229
